FAERS Safety Report 6307710-X (Version None)
Quarter: 2009Q3

REPORT INFORMATION
  Report Type: 
  Country: None (occurrence: None)
  Receive Date: 20090813
  Receipt Date: 20090803
  Transmission Date: 20100115
  Serious: Yes (Hospitalization)
  Sender: FDA-Public Use
  Company Number: IT-AMGEN-QUU358381

PATIENT
  Sex: Female

DRUGS (4)
  1. NEULASTA [Suspect]
     Indication: CHEMOTHERAPY
     Route: 058
     Dates: start: 20090728, end: 20090728
  2. PARIET [Concomitant]
     Route: 048
     Dates: start: 20090728, end: 20090731
  3. DIAZEPAM [Concomitant]
     Route: 048
     Dates: start: 20060101
  4. CYMBALTA [Concomitant]
     Route: 048
     Dates: start: 20060101

REACTIONS (2)
  - DYSPNOEA [None]
  - URTICARIA [None]
